FAERS Safety Report 5137035-X (Version None)
Quarter: 2006Q4

REPORT INFORMATION
  Report Type: 
  Country: None (occurrence: None)
  Receive Date: 20061030
  Receipt Date: 20060831
  Transmission Date: 20070319
  Serious: Yes (Other)
  Sender: FDA-Public Use
  Company Number: 2006UW17338

PATIENT
  Age: 80 Year
  Sex: Female
  Weight: 70 kg

DRUGS (14)
  1. CRESTOR [Suspect]
     Route: 048
     Dates: start: 20060309, end: 20060409
  2. PARIET [Suspect]
  3. TENORETIC 100 [Concomitant]
     Indication: HYPERTENSION
     Dosage: 50/25
     Route: 048
  4. DIOVAN [Concomitant]
     Dates: start: 20060320
  5. ALLOPURINOL [Concomitant]
  6. NORVASC [Concomitant]
     Dates: start: 20050101, end: 20060420
  7. ASPIRIN [Concomitant]
  8. TIAZAC [Concomitant]
  9. ACTONEL [Concomitant]
  10. NITRO-DUR [Concomitant]
  11. ATENOLOL [Concomitant]
  12. ASPIRIN [Concomitant]
  13. LORAZEPAM [Concomitant]
  14. TOCOPHEROL CONCENTRATE CAP [Concomitant]
     Dosage: 1 TABLET

REACTIONS (1)
  - NEPHRITIS INTERSTITIAL [None]
